FAERS Safety Report 5648437-7 (Version None)
Quarter: 2008Q1

REPORT INFORMATION
  Report Type: 
  Country: None (occurrence: None)
  Receive Date: 20080229
  Receipt Date: 20080222
  Transmission Date: 20080703
  Serious: Yes (Hospitalization, Disabling)
  Sender: FDA-Public Use
  Company Number: 2008AP000502

PATIENT
  Age: 1 Hour
  Sex: Male

DRUGS (4)
  1. PAROXETINE HCL [Suspect]
     Dosage: SEE IMAGE
     Route: 064
     Dates: start: 20050816
  2. PAROXETINE HCL [Suspect]
     Dosage: SEE IMAGE
     Route: 064
     Dates: start: 20070320
  3. PAROXETINE HCL [Suspect]
     Dosage: SEE IMAGE
     Route: 064
     Dates: start: 20070419
  4. PAROXETINE HCL [Suspect]
     Dosage: SEE IMAGE
     Route: 064
     Dates: start: 20071012

REACTIONS (3)
  - CAESAREAN SECTION [None]
  - DRUG EXPOSURE DURING PREGNANCY [None]
  - TALIPES [None]
